FAERS Safety Report 7577234-0 (Version None)
Quarter: 2011Q2

REPORT INFORMATION
  Report Type: 
  Country: None (occurrence: None)
  Receive Date: 20110621
  Receipt Date: 20110606
  Transmission Date: 20111010
  Serious: Yes (Hospitalization)
  Sender: FDA-Public Use
  Company Number: AUR-APL-2011-02788

PATIENT
  Sex: Male

DRUGS (1)
  1. LAMOTRIGINE [Suspect]
     Indication: MOOD ALTERED
     Dosage: (25 MG, 1 D), TRANSPLACENTAL; (50 MG), TRANSPLACENTAL
     Route: 064

REACTIONS (4)
  - DRUG EXPOSURE DURING PREGNANCY [None]
  - OXYGEN SATURATION DECREASED [None]
  - DRUG EXPOSURE VIA BREAST MILK [None]
  - INFECTION [None]
